FAERS Safety Report 15338282 (Version 1)
Quarter: 2020Q3

REPORT INFORMATION
  Report Type: Report from Study
  Country: US (occurrence: US)
  Receive Date: 20180831
  Receipt Date: 20180831
  Transmission Date: 20201105
  Serious: Yes (Hospitalization)
  Sender: FDA-Public Use
  Company Number: US-ASTRAZENECA-2015SE73678

PATIENT
  Age: 23217 Day
  Sex: Female

DRUGS (5)
  1. HYDROXYINE PAMOATE [Concomitant]
     Dosage: 25.0MG AS REQUIRED
     Route: 048
     Dates: start: 20150623
  2. TRIAMCINOLONE [Concomitant]
     Active Substance: TRIAMCINOLONE
     Dosage: 0.5% UNKNOWN
     Route: 061
     Dates: start: 20150623
  3. COMPAZINE [Concomitant]
     Active Substance: PROCHLORPERAZINE MALEATE
     Route: 048
     Dates: start: 20150615
  4. MEDI4736 [Suspect]
     Active Substance: DURVALUMAB
     Indication: NEOPLASM
     Route: 042
     Dates: start: 20150601
  5. TREMELIMUMAB. [Suspect]
     Active Substance: TREMELIMUMAB
     Indication: NEOPLASM
     Dosage: EVERY 4 WEEKS FOR THE FIRST 6 CYCLES AND THEN CYCLE 7, 10 AND 13 (EVERY 12 WEEKS (Q12W))
     Route: 042
     Dates: start: 20150601, end: 20150629

REACTIONS (1)
  - Hypothalamo-pituitary disorder [Recovered/Resolved]

NARRATIVE: CASE EVENT DATE: 20150722
